FAERS Safety Report 13796280 (Version 2)
Quarter: 2017Q3

REPORT INFORMATION
  Report Type: Spontaneous
  Country: FR (occurrence: FR)
  Receive Date: 20170726
  Receipt Date: 20170823
  Transmission Date: 20171127
  Serious: Yes (Congenital Anomaly)
  Sender: FDA-Public Use
  Company Number: FR-ABBVIE-17P-163-2051918-00

PATIENT
  Sex: Female

DRUGS (1)
  1. DEPAKINE [Suspect]
     Active Substance: VALPROATE SODIUM
     Indication: MATERNAL EXPOSURE TIMING UNSPECIFIED
     Route: 064

REACTIONS (12)
  - Tooth malformation [Not Recovered/Not Resolved]
  - Tendon laxity [Not Recovered/Not Resolved]
  - Tooth loss [Not Recovered/Not Resolved]
  - Foetal exposure during pregnancy [Unknown]
  - Heart disease congenital [Not Recovered/Not Resolved]
  - Hypermobility syndrome [Not Recovered/Not Resolved]
  - Deafness [Not Recovered/Not Resolved]
  - Speech disorder [Not Recovered/Not Resolved]
  - Back pain [Not Recovered/Not Resolved]
  - Fatigue [Not Recovered/Not Resolved]
  - Astigmatism [Not Recovered/Not Resolved]
  - Memory impairment [Not Recovered/Not Resolved]
